FAERS Safety Report 7000407-2 (Version None)
Quarter: 2010Q3

REPORT INFORMATION
  Report Type: 
  Country: None (occurrence: None)
  Receive Date: 20100920
  Receipt Date: 20100602
  Transmission Date: 20110219
  Serious: No
  Sender: FDA-Public Use
  Company Number: US-ASTRAZENECA-2010SE25520

PATIENT
  Sex: Male

DRUGS (2)
  1. SEROQUEL XR [Suspect]
     Indication: DEPRESSION
     Route: 048
  2. EFFEXOR [Concomitant]

REACTIONS (1)
  - HALLUCINATION, AUDITORY [None]
